FAERS Safety Report 16116393 (Version 1)
Quarter: 2019Q1

REPORT INFORMATION
  Report Type: Spontaneous
  Country: US (occurrence: US)
  Receive Date: 20190220
  Receipt Date: 20190220
  Transmission Date: 20190418
  Serious: Yes (Hospitalization, Other)
  Sender: FDA-Public Use
  Company Number: None

PATIENT
  Age: 52 Year
  Sex: Male
  Weight: 102.51 kg

DRUGS (1)
  1. CHLORTHALIDONE. [Suspect]
     Active Substance: CHLORTHALIDONE
     Indication: HYPERTENSION
     Route: 048
     Dates: start: 20180327, end: 20180402

REACTIONS (6)
  - Syncope [None]
  - Dizziness [None]
  - Tachycardia [None]
  - Dehydration [None]
  - Transient ischaemic attack [None]
  - Acute kidney injury [None]

NARRATIVE: CASE EVENT DATE: 20180331
